FAERS Safety Report 6946939-4 (Version None)
Quarter: 2010Q3

REPORT INFORMATION
  Report Type: 
  Country: None (occurrence: None)
  Receive Date: 20100825
  Receipt Date: 20100809
  Transmission Date: 20110219
  Serious: Yes (Hospitalization)
  Sender: FDA-Public Use
  Company Number: DSA_43738_2010

PATIENT
  Age: 80 Year
  Sex: Female

DRUGS (8)
  1. ENALAPRIL MALEATE [Suspect]
     Indication: ESSENTIAL HYPERTENSION
     Dosage: (DF ORAL)
     Route: 048
     Dates: end: 20090901
  2. DIGOXIN [Suspect]
     Indication: ATRIAL FIBRILLATION
     Dosage: (DF ORAL)
     Route: 048
     Dates: start: 20090801, end: 20090901
  3. DIGOXIN [Suspect]
     Indication: PULMONARY OEDEMA
     Dosage: (DF ORAL)
     Route: 048
     Dates: start: 20090801, end: 20090901
  4. IMPUGAN  ( IMPUGAN  - FUROSEMIDE) (NOT SPECIFIED) [Suspect]
     Indication: PULMONARY OEDEMA
     Dosage: (DF ORAL)
     Route: 048
     Dates: end: 20090901
  5. WARAN (UNKNOWN) [Concomitant]
  6. METOPROLOL TARTRATE [Concomitant]
  7. SIMVASTATIN [Concomitant]
  8. SPIRONOLACTONE (UNKNOWN) [Concomitant]

REACTIONS (8)
  - DECREASED APPETITE [None]
  - DRUG THERAPEUTIC INCOMPATIBILITY [None]
  - FATIGUE [None]
  - HYPOTENSION [None]
  - PNEUMOTHORAX [None]
  - PULMONARY FIBROSIS [None]
  - PULMONARY OEDEMA [None]
  - THERAPEUTIC AGENT TOXICITY [None]
